FAERS Safety Report 8764149 (Version 1)
Quarter: 2012Q4

REPORT INFORMATION
  Report Type: 
  Country: CO (occurrence: CO)
  Receive Date: 20120831
  Receipt Date: 20120831
  Transmission Date: 20130627
  Serious: Yes (Hospitalization)
  Sender: FDA-Public Use
  Company Number: CO-ABBOTT-12P-036-0974996-00

PATIENT
  Age: 48 Year
  Sex: Female
  Weight: 67 kg

DRUGS (5)
  1. HUMIRA 40 MG/ 0.8 ML PRE-FILLED SYRINGE [Suspect]
     Indication: RHEUMATOID ARTHRITIS
     Route: 058
     Dates: start: 20100728
  2. WARFARIN [Concomitant]
     Indication: PRODUCT USED FOR UNKNOWN INDICATION
     Route: 048
     Dates: start: 2009
  3. METOPROLOL [Concomitant]
     Indication: PRODUCT USED FOR UNKNOWN INDICATION
  4. LOSARTAN [Concomitant]
     Indication: PRODUCT USED FOR UNKNOWN INDICATION
  5. MOVIFLEX [Concomitant]
     Indication: PRODUCT USED FOR UNKNOWN INDICATION

REACTIONS (1)
  - Thrombosis [Recovered/Resolved]
